FAERS Safety Report 5929261-4 (Version None)
Quarter: 2008Q4

REPORT INFORMATION
  Report Type: 
  Country: None (occurrence: None)
  Receive Date: 20081024
  Receipt Date: 20081017
  Transmission Date: 20090506
  Serious: Yes (Other)
  Sender: FDA-Public Use
  Company Number: HK-AVENTIS-200819984GDDC

PATIENT
  Age: 36 Year
  Sex: Female

DRUGS (1)
  1. CLOMIPHENE CITRATE [Suspect]
     Indication: INFERTILITY
     Route: 048

REACTIONS (1)
  - RETINAL VEIN OCCLUSION [None]
